FAERS Safety Report 11464618 (Version 2)
Quarter: 2015Q3

REPORT INFORMATION
  Report Type: Spontaneous
  Country: US (occurrence: US)
  Receive Date: 20150906
  Receipt Date: 20150914
  Transmission Date: 20151125
  Serious: Yes (Other)
  Sender: FDA-Public Use
  Company Number: US-AMGEN-USASP2015089334

PATIENT
  Age: 50 Year
  Sex: Male

DRUGS (1)
  1. BLINCYTO [Suspect]
     Active Substance: BLINATUMOMAB
     Indication: ACUTE LYMPHOCYTIC LEUKAEMIA RECURRENT
     Dosage: 28 MUG, UNK
     Route: 065
     Dates: start: 20150820

REACTIONS (8)
  - Upper gastrointestinal haemorrhage [Unknown]
  - Blast cell count decreased [Unknown]
  - Acidosis [Unknown]
  - Pyrexia [Unknown]
  - Computerised tomogram abnormal [Unknown]
  - Blast cell count increased [Unknown]
  - Blood lactic acid increased [Unknown]
  - Electrocardiogram QT prolonged [Unknown]
